FAERS Safety Report 23462997 (Version 1)
Quarter: 2024Q1

REPORT INFORMATION
  Report Type: Spontaneous
  Country: US (occurrence: US)
  Receive Date: 20240131
  Receipt Date: 20240131
  Transmission Date: 20240410
  Serious: Yes (Other)
  Sender: FDA-Public Use
  Company Number: US-OTTER-US-2024AST000037

PATIENT
  Age: 37 Year
  Sex: Male

DRUGS (3)
  1. METHOTREXATE [Suspect]
     Active Substance: METHOTREXATE
     Indication: Multicentric reticulohistiocytosis
     Dosage: 15 MG, WEEKLY
     Route: 065
  2. INFLIXIMAB [Suspect]
     Active Substance: INFLIXIMAB
     Indication: Multicentric reticulohistiocytosis
     Dosage: 100 MG, EVERY 8 WEEKS
     Route: 042
  3. FOLATE SODIUM [Concomitant]
     Active Substance: FOLATE SODIUM
     Indication: Multicentric reticulohistiocytosis
     Dosage: 1 MG, QD
     Route: 065

REACTIONS (1)
  - Clear cell renal cell carcinoma [Recovered/Resolved]
